FAERS Safety Report 5490043-1 (Version None)
Quarter: 2007Q4

REPORT INFORMATION
  Report Type: 
  Country: None (occurrence: None)
  Receive Date: 20071016
  Receipt Date: 20070627
  Transmission Date: 20080405
  Serious: Yes (Other)
  Sender: FDA-Public Use
  Company Number: 2007MP000539

PATIENT

DRUGS (2)
  1. GLIADEL [Suspect]
     Indication: GLIOBLASTOMA MULTIFORME
     Dosage: ;X1;ICER
  2. O6-BENZYLGUANIC [Concomitant]

REACTIONS (7)
  - ARACHNOIDITIS [None]
  - CEREBRAL HYGROMA [None]
  - HYDROCEPHALUS [None]
  - HYPONATRAEMIA [None]
  - INTRACRANIAL HYPOTENSION [None]
  - MENINGITIS [None]
  - POSTOPERATIVE WOUND INFECTION [None]
